FAERS Safety Report 6775699-5 (Version None)
Quarter: 2010Q2

REPORT INFORMATION
  Report Type: 
  Country: None (occurrence: None)
  Receive Date: 20100617
  Receipt Date: 20100614
  Transmission Date: 20101027
  Serious: Yes (Congenital Anomaly)
  Sender: FDA-Public Use
  Company Number: FR-GILEAD-2010-0029797

PATIENT
  Sex: Female

DRUGS (3)
  1. TRUVADA [Suspect]
     Indication: ANTIRETROVIRAL THERAPY
     Route: 064
  2. EFAVIRENZ [Concomitant]
     Route: 054
     Dates: end: 20091202
  3. KALETRA [Concomitant]

REACTIONS (1)
  - CONGENITAL HYDROCEPHALUS [None]
